FAERS Safety Report 18639352 (Version 1)
Quarter: 2020Q4

REPORT INFORMATION
  Report Type: Spontaneous
  Country: IN (occurrence: IN)
  Receive Date: 20201219
  Receipt Date: 20201219
  Transmission Date: 20210114
  Serious: Yes (Other)
  Sender: FDA-Public Use
  Company Number: IN-SA-2020SA355915

PATIENT

DRUGS (3)
  1. RIFAMPICIN [Suspect]
     Active Substance: RIFAMPIN
     Indication: PULMONARY TUBERCULOSIS
  2. PYRAZINAMIDE. [Concomitant]
     Active Substance: PYRAZINAMIDE
     Indication: PULMONARY TUBERCULOSIS
  3. ISONIAZID. [Concomitant]
     Active Substance: ISONIAZID
     Indication: PULMONARY TUBERCULOSIS

REACTIONS (2)
  - Bronchospasm [Recovered/Resolved]
  - Asthma [Recovered/Resolved]
